FAERS Safety Report 7251764-3 (Version None)
Quarter: 2011Q1

REPORT INFORMATION
  Report Type: 
  Country: None (occurrence: None)
  Receive Date: 20110128
  Receipt Date: 20100526
  Transmission Date: 20110831
  Serious: Yes (Hospitalization)
  Sender: FDA-Public Use
  Company Number: FR-AMGEN-QUU415444

PATIENT
  Age: 58 Year
  Sex: Male

DRUGS (10)
  1. ENBREL [Suspect]
     Dosage: UNK UNK, UNK
     Route: 058
     Dates: start: 20091101, end: 20100429
  2. IRBESARTAN [Suspect]
     Dosage: 150 MG, QD
     Route: 048
     Dates: start: 20040101, end: 20100501
  3. ACETAMINOPHEN [Suspect]
     Dosage: 1 G, QID
     Route: 048
     Dates: start: 20100301, end: 20100428
  4. ZAMUDOL [Suspect]
     Dosage: 200 MG, QD
     Route: 048
     Dates: start: 20100407, end: 20100428
  5. ATRIPLA [Suspect]
     Dosage: 1 UNK, QD
     Route: 048
     Dates: start: 20090701, end: 20100501
  6. ZAMUDOL [Suspect]
     Dosage: 200 MG, BID
     Route: 048
     Dates: start: 20100301, end: 20100406
  7. METOJECT [Suspect]
     Dosage: 15 MG, QWK
     Dates: start: 20100407, end: 20100419
  8. METOJECT [Suspect]
     Dosage: 20 MG, QWK
     Dates: start: 20090928, end: 20100401
  9. STABLON [Suspect]
     Dosage: 12.5 MG, TID
     Route: 048
     Dates: start: 20090101, end: 20100502
  10. GABAPENTIN [Suspect]
     Dosage: 400 MG, QD
     Route: 048
     Dates: end: 20100503

REACTIONS (4)
  - PNEUMONIA [None]
  - BACTERAEMIA [None]
  - PANCYTOPENIA [None]
  - MUSCULOSKELETAL CHEST PAIN [None]
